FAERS Safety Report 6825490-6 (Version None)
Quarter: 2010Q3

REPORT INFORMATION
  Report Type: 
  Country: None (occurrence: None)
  Receive Date: 20100708
  Receipt Date: 20070316
  Transmission Date: 20110219
  Serious: No
  Sender: FDA-Public Use
  Company Number: US-PFIZER INC-2007001435

PATIENT
  Sex: Female
  Weight: 84.8 kg

DRUGS (10)
  1. CHANTIX [Suspect]
     Indication: SMOKING CESSATION THERAPY
     Dates: start: 20061219
  2. CRESTOR [Concomitant]
  3. COREG [Concomitant]
  4. LOTREL [Concomitant]
  5. AMARYL [Concomitant]
  6. VALSARTAN [Concomitant]
  7. FUROSEMIDE [Concomitant]
  8. CYMBALTA [Concomitant]
  9. ACTOS [Concomitant]
  10. ACETYLSALICYLIC ACID [Concomitant]

REACTIONS (1)
  - DRUG INEFFECTIVE [None]
